FAERS Safety Report 25030315 (Version 3)
Quarter: 2025Q1

REPORT INFORMATION
  Report Type: Spontaneous
  Country: IN (occurrence: IN)
  Receive Date: 20250303
  Receipt Date: 20250313
  Transmission Date: 20250409
  Serious: Yes (Other)
  Sender: SANDOZ
  Company Number: IN-SANDOZ-SDZ2025IN012851

PATIENT
  Sex: Male

DRUGS (2)
  1. MYFORTIC [Suspect]
     Active Substance: MYCOPHENOLATE SODIUM
     Indication: Renal transplant
     Dosage: 360 MG, BID (BD)
     Route: 048
  2. TACROLIMUS [Suspect]
     Active Substance: TACROLIMUS
     Indication: Renal transplant
     Dosage: 4.5 MG, QD(2MG (M), 2.5 MG (N), OTHER
     Route: 048

REACTIONS (15)
  - Cardiac failure acute [Unknown]
  - Lower respiratory tract infection [Unknown]
  - Acute kidney injury [Unknown]
  - Electrolyte imbalance [Unknown]
  - Hypoalbuminaemia [Unknown]
  - Chest discomfort [Unknown]
  - Toxicity to various agents [Unknown]
  - Dyspnoea [Unknown]
  - Cough [Unknown]
  - Decreased appetite [Unknown]
  - Asthenia [Unknown]
  - Procedural pain [Unknown]
  - Nasopharyngitis [Unknown]
  - Left ventricular dysfunction [Unknown]
  - Off label use [Unknown]
